FAERS Safety Report 17543806 (Version 2)
Quarter: 2023Q1

REPORT INFORMATION
  Report Type: Spontaneous
  Country: DE (occurrence: DE)
  Receive Date: 20200316
  Receipt Date: 20230125
  Transmission Date: 20230417
  Serious: Yes (Life-Threatening, Hospitalization)
  Sender: FDA-Public Use
  Company Number: DE-ADRED-04399-01

PATIENT
  Age: 77 Year
  Sex: Male

DRUGS (5)
  1. PROPAFENONE [Interacting]
     Active Substance: PROPAFENONE
     Indication: Product used for unknown indication
     Dosage: 150 MILLIGRAM DAILY; 150 MG, 1-0-0-0
     Route: 065
  2. DIGITOXIN [Interacting]
     Active Substance: DIGITOXIN
     Indication: Product used for unknown indication
     Dosage: .07 MILLIGRAM DAILY; 0.07 MG, 1-0-0-0 ,
     Route: 065
  3. BISOPROLOL FUMARATE [Interacting]
     Active Substance: BISOPROLOL FUMARATE
     Indication: Product used for unknown indication
     Dosage: 2.5 MILLIGRAM DAILY; 2.5 MG, 1-0-0-0
  4. ALFUZOSIN [Concomitant]
     Active Substance: ALFUZOSIN
     Indication: Product used for unknown indication
     Dosage: 5 MILLIGRAM DAILY; 5 MG, 1-0-0-0
  5. EDOXABAN TOSYLATE [Concomitant]
     Active Substance: EDOXABAN TOSYLATE
     Indication: Product used for unknown indication
     Dosage: 30 MILLIGRAM DAILY; 30 MG, 1-0-0-0

REACTIONS (4)
  - Arrhythmia [Unknown]
  - Bradycardia [Unknown]
  - Labelled drug-drug interaction medication error [Unknown]
  - Dizziness [Unknown]

NARRATIVE: CASE EVENT DATE: 20191031
